FAERS Safety Report 15438341 (Version 1)
Quarter: 2018Q4

REPORT INFORMATION
  Report Type: Spontaneous
  Country: US (occurrence: US)
  Receive Date: 20180928
  Receipt Date: 20180928
  Transmission Date: 20190204
  Serious: No
  Sender: FDA-Public Use
  Company Number: US-BION-006940

PATIENT
  Sex: Male

DRUGS (1)
  1. IMODIUM A-D [Suspect]
     Active Substance: LOPERAMIDE HYDROCHLORIDE
     Indication: SMALL INTESTINAL RESECTION
     Route: 048

REACTIONS (5)
  - Incorrect dose administered [Not Recovered/Not Resolved]
  - Pain [Unknown]
  - Lacrimation increased [Unknown]
  - Product use in unapproved indication [Not Recovered/Not Resolved]
  - Product physical issue [Unknown]
